FAERS Safety Report 9167505 (Version 1)
Quarter: 2013Q1

REPORT INFORMATION
  Report Type: Spontaneous
  Country: US (occurrence: US)
  Receive Date: 20130318
  Receipt Date: 20130318
  Transmission Date: 20140127
  Serious: Yes (Hospitalization, Other)
  Sender: FDA-Public Use
  Company Number: US-BAYER-2013-030891

PATIENT
  Age: 46 Year
  Sex: Female
  Weight: 74 kg

DRUGS (19)
  1. OCELLA [Suspect]
  2. YASMIN [Suspect]
  3. ZYPREXA [Concomitant]
     Indication: ANXIETY
     Dosage: 0.25 MG, UNK
     Route: 048
  4. IBUPROFEN [IBUPROFEN] [Concomitant]
  5. NEXIUM [Concomitant]
     Indication: GASTROOESOPHAGEAL REFLUX DISEASE
     Dosage: 40 MG, DAILY
     Route: 048
  6. FEOSOL [Concomitant]
     Indication: ANAEMIA
     Dosage: 325 MG, UNK
     Route: 048
  7. VENTOLIN HFA [Concomitant]
     Indication: ASTHMA
     Dosage: UNK, 2 PUFFS EVERY 4 DAYS AS NEEDED
  8. ZOLOFT [Concomitant]
     Dosage: 25 MG, DAILY
  9. QUETIAPINE [Concomitant]
     Indication: INSOMNIA
     Dosage: 50 MG, HS, AS NEEDED
     Route: 048
  10. LORAZEPAM [Concomitant]
     Indication: ANXIETY
     Dosage: 0.5 MG, Q4HR AS NEEDED
     Route: 048
  11. MAGNESIUM HYDROXIDE [Concomitant]
     Indication: CONSTIPATION
     Dosage: 30 ML, HS AS NEEDED
     Route: 048
  12. ACETAMINOPHEN [Concomitant]
     Indication: PAIN
     Dosage: 2 TABLETS AS NEEDED
  13. MAG-AL HYDROX/SIMETH [Concomitant]
     Indication: DYSPEPSIA
     Dosage: 30 ML, Q4HR, AS NEEDED
  14. ALBUTEROL [Concomitant]
  15. FERRLECIT [FERROUS SUCCINATE] [Concomitant]
     Indication: IRON DEFICIENCY
     Dosage: 125 MG, DAILY
     Route: 042
  16. FERROUS SULPHATE [Concomitant]
     Indication: IRON DEFICIENCY
  17. NSAID^S [Concomitant]
     Indication: ARTHRITIS
  18. PLASMA, FRESH FROZEN [Concomitant]
  19. VITAMIN K NOS [Concomitant]

REACTIONS (2)
  - Pulmonary embolism [None]
  - Cerebrovascular accident [None]
